FAERS Safety Report 8317920-8 (Version None)
Quarter: 2012Q2

REPORT INFORMATION
  Report Type: 
  Country: None (occurrence: None)
  Receive Date: 20120427
  Receipt Date: 20120420
  Transmission Date: 20120825
  Serious: Yes (Other)
  Sender: FDA-Public Use
  Company Number: US-US-EMD SERONO, INC.-7127879

PATIENT
  Sex: Female

DRUGS (2)
  1. REBIF [Suspect]
     Indication: MULTIPLE SCLEROSIS
     Route: 058
     Dates: start: 20111020
  2. PROVIGIL [Concomitant]
     Indication: BALANCE DISORDER
     Dates: start: 20120406

REACTIONS (4)
  - KIDNEY INFECTION [None]
  - INJECTION SITE RASH [None]
  - INJECTION SITE HAEMATOMA [None]
  - VULVOVAGINAL MYCOTIC INFECTION [None]
